FAERS Safety Report 9143436 (Version 1)
Quarter: 2013Q1

REPORT INFORMATION
  Report Type: Spontaneous
  Country: US (occurrence: None)
  Receive Date: 20130306
  Receipt Date: 20130306
  Transmission Date: 20140127
  Serious: No
  Sender: FDA-Public Use
  Company Number: ENDO PHARMACEUTICALS INC.-OPER20120177

PATIENT
  Sex: Female

DRUGS (2)
  1. OPANA ER [Suspect]
     Indication: PAIN
     Route: 048
     Dates: end: 20120226
  2. OPANA ER 20MG [Suspect]
     Indication: PAIN
     Route: 048
     Dates: end: 20120226

REACTIONS (1)
  - No adverse event [Unknown]
